FAERS Safety Report 7721715-3 (Version None)
Quarter: 2011Q3

REPORT INFORMATION
  Report Type: 
  Country: None (occurrence: None)
  Receive Date: 20110831
  Receipt Date: 20110822
  Transmission Date: 20111222
  Serious: Yes (Hospitalization)
  Sender: FDA-Public Use
  Company Number: JP-GLAXOSMITHKLINE-B0742456A

PATIENT
  Age: 80 Year
  Sex: Male

DRUGS (2)
  1. ZOVIRAX [Suspect]
     Indication: PRODUCT USED FOR UNKNOWN INDICATION
     Route: 048
  2. MEROPENEM [Concomitant]
     Dosage: 1G PER DAY
     Route: 042

REACTIONS (11)
  - HEADACHE [None]
  - ELECTROENCEPHALOGRAM ABNORMAL [None]
  - NAUSEA [None]
  - CSF GLUCOSE DECREASED [None]
  - CSF POLYMORPHONUCLEAR CELL COUNT INCREASED [None]
  - TOXIC ENCEPHALOPATHY [None]
  - ALTERED STATE OF CONSCIOUSNESS [None]
  - PYREXIA [None]
  - SOMNOLENCE [None]
  - VOMITING [None]
  - CSF PROTEIN INCREASED [None]
